FAERS Safety Report 9388724 (Version 4)
Quarter: 2013Q4

REPORT INFORMATION
  Report Type: Report from Study
  Country: US (occurrence: US)
  Receive Date: 20130708
  Receipt Date: 20131223
  Transmission Date: 20140711
  Serious: Yes (Life-Threatening, Hospitalization, Other)
  Sender: FDA-Public Use
  Company Number: US-ACTELION-A-US2011-45297

PATIENT
  Age: 75 Year
  Sex: Female

DRUGS (7)
  1. TRACLEER [Suspect]
     Indication: PULMONARY ARTERIAL HYPERTENSION
     Dosage: 125 MG, BID
     Route: 048
     Dates: start: 2009
  2. TRACLEER [Suspect]
     Dosage: 62.5 MG, BID
     Route: 048
     Dates: start: 2009
  3. DICYCLOMINE [Concomitant]
     Dosage: 20 MG, UNK
     Dates: start: 20130205
  4. AMLODIPINE [Concomitant]
  5. MULTAQ [Concomitant]
     Dosage: 400 MG, BID
  6. CLONAZEPAM [Concomitant]
     Dosage: 1 MG, UNK
  7. WARFARIN [Concomitant]

REACTIONS (10)
  - Atrial fibrillation [Recovered/Resolved]
  - Constipation [Not Recovered/Not Resolved]
  - Fall [Recovered/Resolved]
  - Pelvic fracture [Recovered/Resolved]
  - Lumbar vertebral fracture [Recovered/Resolved]
  - Arthritis [Not Recovered/Not Resolved]
  - Irritable bowel syndrome [Not Recovered/Not Resolved]
  - Large intestine polyp [Not Recovered/Not Resolved]
  - Back injury [Recovered/Resolved]
  - Diarrhoea [Not Recovered/Not Resolved]
